FAERS Safety Report 7526173-X (Version None)
Quarter: 2011Q2

REPORT INFORMATION
  Report Type: 
  Country: None (occurrence: None)
  Receive Date: 20110527
  Receipt Date: 20110518
  Transmission Date: 20111010
  Serious: Yes (Hospitalization)
  Sender: FDA-Public Use
  Company Number: UTC-007250

PATIENT
  Age: 57 Year
  Sex: Male
  Weight: 120 kg

DRUGS (2)
  1. TYVASO [Suspect]
     Indication: COR PULMONALE CHRONIC
     Dosage: 96 MCG (24 MCG,4 IN 1 D),INHALATION
     Route: 055
     Dates: start: 20090902
  2. ADCIRCA [Concomitant]

REACTIONS (3)
  - SCROTAL PAIN [None]
  - SCROTAL SWELLING [None]
  - FLUID RETENTION [None]
